FAERS Safety Report 23049966 (Version 1)
Quarter: 2023Q4

REPORT INFORMATION
  Report Type: Spontaneous
  Country: US (occurrence: None)
  Receive Date: 20231008
  Receipt Date: 20231008
  Transmission Date: 20240109
  Serious: Yes (Disabling, Other)
  Sender: FDA-Public Use
  Company Number: None

PATIENT
  Age: 43 Year
  Sex: Female
  Weight: 60.75 kg

DRUGS (11)
  1. TALTZ [Suspect]
     Active Substance: IXEKIZUMAB
     Indication: Psoriatic arthropathy
     Dates: start: 20230524, end: 20230731
  2. TALTZ [Suspect]
     Active Substance: IXEKIZUMAB
     Indication: Psoriasis
  3. ADDERALL [Concomitant]
     Active Substance: AMPHETAMINE ASPARTATE\AMPHETAMINE SULFATE\DEXTROAMPHETAMINE SACCHARATE\DEXTROAMPHETAMINE SULFATE
  4. METHYLPHENIDATE HYDROCHLORIDE [Concomitant]
     Active Substance: METHYLPHENIDATE HYDROCHLORIDE
  5. MESALAMINE [Concomitant]
     Active Substance: MESALAMINE
  6. HYDROCORTISONE [Concomitant]
     Active Substance: HYDROCORTISONE
  7. TACROLIMUS [Concomitant]
     Active Substance: TACROLIMUS
  8. ALBUTEROL [Concomitant]
     Active Substance: ALBUTEROL
  9. INCRUSE ELLIPTA [Concomitant]
     Active Substance: UMECLIDINIUM BROMIDE
  10. JAK (Tofacitinib) [Concomitant]
  11. TYLENOL [Concomitant]
     Active Substance: ACETAMINOPHEN

REACTIONS (10)
  - Abdominal pain upper [None]
  - Defaecation urgency [None]
  - Dyspepsia [None]
  - Nausea [None]
  - Diarrhoea [None]
  - Mucous stools [None]
  - Haematochezia [None]
  - Constipation [None]
  - Coccydynia [None]
  - Proctalgia [None]

NARRATIVE: CASE EVENT DATE: 20230629
